FAERS Safety Report 14105075 (Version 1)
Quarter: 2017Q4

REPORT INFORMATION
  Report Type: Spontaneous
  Country: US (occurrence: US)
  Receive Date: 20171018
  Receipt Date: 20171018
  Transmission Date: 20180321
  Serious: No
  Sender: FDA-Public Use
  Company Number: US-NEUROCRINE BIOSCIENCES INC.-2017NBI00717

PATIENT
  Sex: Female

DRUGS (2)
  1. INGREZZA [Suspect]
     Active Substance: VALBENAZINE
     Indication: TARDIVE DYSKINESIA
     Route: 048
     Dates: start: 20170810, end: 20170810
  2. CLOZARIL [Concomitant]
     Active Substance: CLOZAPINE
     Dates: start: 20170809, end: 20170810

REACTIONS (2)
  - Throat tightness [Unknown]
  - Wheezing [Unknown]

NARRATIVE: CASE EVENT DATE: 20170810
